FAERS Safety Report 4848667-8 (Version None)
Quarter: 2005Q4

REPORT INFORMATION
  Report Type: 
  Country: None (occurrence: None)
  Receive Date: 20051206
  Receipt Date: 20051125
  Transmission Date: 20060501
  Serious: Yes (Hospitalization)
  Sender: FDA-Public Use
  Company Number: GXKR2005GB02044

PATIENT
  Age: 69 Year
  Sex: Male

DRUGS (6)
  1. RAMIPRIL [Suspect]
     Indication: HYPERTENSION
     Dates: start: 19980101
  2. ASPIRIN [Suspect]
  3. ATENOLOL [Suspect]
  4. FELODIPINE [Suspect]
  5. ATORVASTATIN CALCIUM [Suspect]
  6. AMITRIPTYLINE HCL [Suspect]

REACTIONS (4)
  - ANGIONEUROTIC OEDEMA [None]
  - DROOLING [None]
  - POST PROCEDURAL COMPLICATION [None]
  - SWOLLEN TONGUE [None]
